FAERS Safety Report 12866928 (Version 5)
Quarter: 2020Q3

REPORT INFORMATION
  Report Type: Spontaneous
  Country: GB (occurrence: GB)
  Receive Date: 20161020
  Receipt Date: 20161208
  Transmission Date: 20201104
  Serious: Yes (Other)
  Sender: FDA-Public Use
  Company Number: GB-PFIZER INC-2016481951

PATIENT
  Age: 17 Year
  Sex: Male
  Weight: 66.5 kg

DRUGS (11)
  1. LOSARTAN. [Concomitant]
     Active Substance: LOSARTAN
     Indication: PRODUCT USED FOR UNKNOWN INDICATION
     Dosage: UNK
     Route: 065
  2. ROCURONIUM BROMIDE. [Suspect]
     Active Substance: ROCURONIUM BROMIDE
     Indication: ANAESTHESIA
     Dosage: 20 MG, UNK
     Route: 042
     Dates: start: 20160926, end: 20160926
  3. CODEINE [Suspect]
     Active Substance: CODEINE
     Indication: ANALGESIC THERAPY
     Dosage: 30 MG, 1X/DAY
     Route: 048
     Dates: start: 20160926, end: 20161005
  4. EPHEDRINE. [Suspect]
     Active Substance: EPHEDRINE
     Dosage: 6 MG, UNK
     Route: 042
     Dates: start: 20160926, end: 20160926
  5. PARACETAMOL [Suspect]
     Active Substance: ACETAMINOPHEN
     Indication: ANALGESIC THERAPY
     Dosage: 1 G, 4X/DAY
     Route: 042
     Dates: start: 20160926, end: 20161003
  6. HYDROCHLORTHIAZID [Concomitant]
     Active Substance: HYDROCHLOROTHIAZIDE
     Indication: PRODUCT USED FOR UNKNOWN INDICATION
     Dosage: UNK
     Route: 065
  7. REMIFENTANIL [Suspect]
     Active Substance: REMIFENTANIL
     Indication: ANAESTHESIA
     Dosage: 8.6 MG, UNK
     Route: 042
     Dates: start: 20160926, end: 20160926
  8. MORPHINE SULFATE. [Suspect]
     Active Substance: MORPHINE SULFATE
     Indication: ANALGESIC THERAPY
     Dosage: 6.5 MG, 1X/DAY
     Route: 042
     Dates: start: 20160926, end: 20160926
  9. 1?ALPHA?25?DIHYDROXYCHOLECALCIFEROL [Concomitant]
  10. DEXAMETHASONE SODIUM PHOSPHATE. [Suspect]
     Active Substance: DEXAMETHASONE SODIUM PHOSPHATE
     Indication: ANAESTHESIA
     Dosage: 6.6 MG, 1X/DAY
     Route: 042
     Dates: start: 20160926, end: 20160926
  11. PROPOFOL. [Suspect]
     Active Substance: PROPOFOL
     Indication: ANAESTHESIA
     Dosage: 200 MG, 1X/DAY
     Route: 042
     Dates: start: 20160926, end: 20160926

REACTIONS (2)
  - Medication error [Unknown]
  - Liver function test abnormal [Not Recovered/Not Resolved]

NARRATIVE: CASE EVENT DATE: 20160926
